FAERS Safety Report 17138784 (Version 1)
Quarter: 2019Q4

REPORT INFORMATION
  Report Type: Spontaneous
  Country: US (occurrence: US)
  Receive Date: 20191210
  Receipt Date: 20191210
  Transmission Date: 20200122
  Serious: Yes (Other)
  Sender: FDA-Public Use
  Company Number: None

PATIENT
  Age: 78 Year
  Sex: Male
  Weight: 72.9 kg

DRUGS (4)
  1. WARAFIN [Concomitant]
     Active Substance: WARFARIN
  2. COENZYME Q10 [Concomitant]
     Active Substance: UBIDECARENONE
  3. NEXIUM [Concomitant]
     Active Substance: ESOMEPRAZOLE MAGNESIUM
  4. PRALUENT [Suspect]
     Active Substance: ALIROCUMAB
     Indication: BLOOD CHOLESTEROL INCREASED
     Dosage: ?          OTHER FREQUENCY:TWICE PER MONTH;OTHER ROUTE:INJECTION TWICE A MONTH?
     Dates: start: 20180601, end: 20191210

REACTIONS (3)
  - Pruritus [None]
  - Myalgia [None]
  - Arthralgia [None]

NARRATIVE: CASE EVENT DATE: 20191101
